FAERS Safety Report 17478579 (Version 1)
Quarter: 2020Q1

REPORT INFORMATION
  Report Type: Spontaneous
  Country: US (occurrence: US)
  Receive Date: 20200228
  Receipt Date: 20200228
  Transmission Date: 20200409
  Serious: No
  Sender: FDA-Public Use
  Company Number: US-IPSEN BIOPHARMACEUTICALS, INC.-2020-03916

PATIENT
  Age: 73 Year
  Sex: Female

DRUGS (1)
  1. DYSPORT [Suspect]
     Active Substance: ABOBOTULINUMTOXINA
     Indication: TORTICOLLIS
     Dosage: 875 UNITS
     Route: 065
     Dates: start: 20200207, end: 20200207

REACTIONS (4)
  - Prescribed overdose [Unknown]
  - Decreased appetite [Unknown]
  - Dysgeusia [Unknown]
  - Back pain [Unknown]

NARRATIVE: CASE EVENT DATE: 202002
